FAERS Safety Report 7043411-0 (Version None)
Quarter: 2010Q4

REPORT INFORMATION
  Report Type: 
  Country: None (occurrence: None)
  Receive Date: 20101013
  Receipt Date: 20100930
  Transmission Date: 20110411
  Serious: Yes (Hospitalization, Other)
  Sender: FDA-Public Use
  Company Number: PHHY2010US57918

PATIENT
  Sex: Male

DRUGS (6)
  1. GLEEVEC [Suspect]
     Indication: GASTROINTESTINAL STROMAL TUMOUR
     Dosage: 400 MG, QD
     Route: 048
     Dates: start: 20100314, end: 20100615
  2. GLEEVEC [Interacting]
     Dosage: 200 MG DAILY
     Route: 048
     Dates: start: 20100811
  3. SAW PALMETTO [Interacting]
  4. SILYBUM MARIANUM [Interacting]
  5. SIMVASTATIN [Concomitant]
     Dosage: 40 MG DAILY
  6. AMLODIPINE [Concomitant]
     Indication: HYPERTENSION

REACTIONS (7)
  - ABDOMINAL PAIN [None]
  - ALANINE AMINOTRANSFERASE INCREASED [None]
  - ASPARTATE AMINOTRANSFERASE INCREASED [None]
  - DRUG INTERACTION [None]
  - LIPASE INCREASED [None]
  - PANCREATITIS [None]
  - RENAL FAILURE ACUTE [None]
